FAERS Safety Report 14228068 (Version 2)
Quarter: 2017Q4

REPORT INFORMATION
  Report Type: Spontaneous
  Country: US (occurrence: US)
  Receive Date: 20171127
  Receipt Date: 20171228
  Transmission Date: 20180321
  Serious: Yes (Hospitalization)
  Sender: FDA-Public Use
  Company Number: US-ACTELION-A-US2017-162852

PATIENT
  Age: 81 Year
  Sex: Female

DRUGS (1)
  1. UPTRAVI [Suspect]
     Active Substance: SELEXIPAG
     Indication: PULMONARY ARTERIAL HYPERTENSION
     Dosage: 1000 MCG, BID
     Route: 048
     Dates: start: 20170109

REACTIONS (4)
  - Ascites [Unknown]
  - Gait disturbance [Unknown]
  - Dyspnoea [Unknown]
  - Renal disorder [Unknown]

NARRATIVE: CASE EVENT DATE: 20171115
